FAERS Safety Report 5303685-0 (Version None)
Quarter: 2007Q2

REPORT INFORMATION
  Report Type: 
  Country: None (occurrence: None)
  Receive Date: 20070420
  Receipt Date: 20070410
  Transmission Date: 20071010
  Serious: Yes (Death, Life-Threatening, Disabling)
  Sender: FDA-Public Use
  Company Number: US-PFIZER INC-2006149768

PATIENT
  Age: 60 Year
  Sex: Male
  Weight: 74.4 kg

DRUGS (10)
  1. PREGABALIN [Suspect]
     Route: 048
  2. MORPHINE ORAL [Suspect]
  3. MORPHINE ORAL [Suspect]
     Route: 048
  4. TEMAZEPAM [Suspect]
  5. CLONAZEPAM [Suspect]
  6. LORAZEPAM [Suspect]
  7. DOCUSATE SODIUM [Concomitant]
  8. SENNOSIDES [Concomitant]
  9. PROMETHAZINE [Concomitant]
     Route: 054
  10. DEXTROAMPHETAMINE SULFATE [Concomitant]

REACTIONS (8)
  - CARDIAC ARREST [None]
  - CONFUSIONAL STATE [None]
  - COORDINATION ABNORMAL [None]
  - DELIRIUM [None]
  - FATIGUE [None]
  - GAIT DISTURBANCE [None]
  - LETHARGY [None]
  - OEDEMA PERIPHERAL [None]
